FAERS Safety Report 6355678-2 (Version None)
Quarter: 2009Q3

REPORT INFORMATION
  Report Type: 
  Country: None (occurrence: None)
  Receive Date: 20090910
  Receipt Date: 20090901
  Transmission Date: 20100115
  Serious: Yes (Hospitalization, Disabling, Other)
  Sender: FDA-Public Use
  Company Number: 2009008078

PATIENT
  Age: 63 Year
  Sex: Male

DRUGS (6)
  1. EFFENTORA (TABLETS) [Suspect]
     Dosage: 100 MCG, OD AS NEEDED, BU, 200 MCG, BU, 400 MCG, DAILY AS NEEDED, BU
     Route: 002
     Dates: start: 20090401, end: 20090624
  2. EFFENTORA (TABLETS) [Suspect]
     Dosage: 100 MCG, OD AS NEEDED, BU, 200 MCG, BU, 400 MCG, DAILY AS NEEDED, BU
     Route: 002
     Dates: start: 20090601
  3. PALLADONE (HYDROMORPHONE) [Concomitant]
  4. LYRICA [Concomitant]
  5. LANSOPRAZOLE [Concomitant]
  6. GALFER (FERROUS FUMARATE) [Concomitant]

REACTIONS (4)
  - DEAFNESS [None]
  - DYSPHAGIA [None]
  - GENERAL PHYSICAL HEALTH DETERIORATION [None]
  - SWELLING FACE [None]
